FAERS Safety Report 21785094 (Version 3)
Quarter: 2024Q1

REPORT INFORMATION
  Report Type: Spontaneous
  Country: US (occurrence: US)
  Receive Date: 20221227
  Receipt Date: 20240212
  Transmission Date: 20240410
  Serious: Yes (Death, Hospitalization)
  Sender: FDA-Public Use
  Company Number: US-PFIZER INC-202201392108

PATIENT
  Age: 85 Year
  Sex: Female
  Weight: 56.689 kg

DRUGS (7)
  1. VYNDAMAX [Suspect]
     Active Substance: TAFAMIDIS
     Indication: Cardiac amyloidosis
     Dosage: 61 MG, 1X/DAY
     Route: 048
     Dates: start: 202206
  2. VYNDAMAX [Suspect]
     Active Substance: TAFAMIDIS
     Indication: Cardiac amyloidosis
  3. TORSEMIDE [Concomitant]
     Active Substance: TORSEMIDE
     Indication: Cardiac disorder
     Dosage: 3 DF, 2X/DAY (20 MG. 3 IN THE MORNING AND 3 IN THE EVENING)
     Dates: start: 202205
  4. ATORVASTATIN [Concomitant]
     Active Substance: ATORVASTATIN
     Dosage: 40 MG, DAILY
  5. SPIRONOLACTONE [Concomitant]
     Active Substance: SPIRONOLACTONE
     Indication: Blood pressure measurement
     Dosage: 25 MG, DAILY
  6. FAMOTIDINE [Concomitant]
     Active Substance: FAMOTIDINE
     Indication: Dyspepsia
     Dosage: 20 MG, DAILY
  7. OXYGEN [Concomitant]
     Active Substance: OXYGEN
     Indication: Cardiac failure congestive
     Dosage: UNK (2 LITERS CONTINUOUS/STARTED 3 YEARS AGO)
     Dates: start: 2019

REACTIONS (6)
  - Death [Fatal]
  - Cardiac failure congestive [Fatal]
  - Chronic obstructive pulmonary disease [Fatal]
  - Dyspnoea [Recovered/Resolved with Sequelae]
  - Rales [Recovered/Resolved with Sequelae]
  - Malaise [Unknown]

NARRATIVE: CASE EVENT DATE: 20221118
